FAERS Safety Report 9735479 (Version 2)
Quarter: 2015Q3

REPORT INFORMATION
  Report Type: Spontaneous
  Country: US (occurrence: US)
  Receive Date: 20131206
  Receipt Date: 20150804
  Transmission Date: 20151125
  Serious: No
  Sender: FDA-Public Use
  Company Number: US-GILEAD-2009-0023342

PATIENT
  Age: 68 Year
  Sex: Female

DRUGS (13)
  1. OMEGA 3 [Concomitant]
     Active Substance: OMEGA-3 FATTY ACIDS
  2. TADALAFIL [Concomitant]
     Active Substance: TADALAFIL
  3. WARFARIN [Concomitant]
     Active Substance: WARFARIN
  4. LISINOPRIL. [Concomitant]
     Active Substance: LISINOPRIL
  5. FLOLAN [Suspect]
     Active Substance: EPOPROSTENOL SODIUM
  6. LEVOTHYROXINE. [Concomitant]
     Active Substance: LEVOTHYROXINE
  7. ATENOLOL. [Concomitant]
     Active Substance: ATENOLOL
  8. PYRIDOXINE [Concomitant]
     Active Substance: PYRIDOXINE
  9. FISH OIL [Concomitant]
     Active Substance: FISH OIL
  10. CENTRUM [Concomitant]
     Active Substance: VITAMINS
  11. CYANOCOBALAMINE [Concomitant]
     Active Substance: CYANOCOBALAMIN
  12. OCUVITE [Concomitant]
     Active Substance: VITAMINS
  13. LETAIRIS [Suspect]
     Active Substance: AMBRISENTAN
     Indication: PULMONARY ARTERIAL HYPERTENSION
     Route: 048
     Dates: start: 20090601

REACTIONS (4)
  - Dry mouth [Not Recovered/Not Resolved]
  - Anaemia [Not Recovered/Not Resolved]
  - Burning sensation [Unknown]
  - Abdominal distension [Unknown]

NARRATIVE: CASE EVENT DATE: 20090727
